FAERS Safety Report 8121523-8 (Version None)
Quarter: 2012Q1

REPORT INFORMATION
  Report Type: 
  Country: None (occurrence: None)
  Receive Date: 20120208
  Receipt Date: 20120202
  Transmission Date: 20120608
  Serious: No
  Sender: FDA-Public Use
  Company Number: US-PFIZER INC-2012017689

PATIENT
  Sex: Male
  Weight: 129 kg

DRUGS (2)
  1. VIAGRA [Suspect]
     Dosage: 250 MG, 3X/DAY
     Dates: start: 20111201
  2. VIAGRA [Suspect]
     Dosage: UNK
     Dates: start: 20120101

REACTIONS (2)
  - INCORRECT DOSE ADMINISTERED [None]
  - TESTICULAR DISORDER [None]
